FAERS Safety Report 9898063 (Version 2)
Quarter: 2014Q1

REPORT INFORMATION
  Report Type: Report from Study
  Country: US (occurrence: US)
  Receive Date: 20140214
  Receipt Date: 20140328
  Transmission Date: 20141002
  Serious: Yes (Other)
  Sender: FDA-Public Use
  Company Number: US-US-EMD SERONO, INC.-7268762

PATIENT
  Sex: Male

DRUGS (2)
  1. REBIF [Suspect]
     Indication: MULTIPLE SCLEROSIS
     Route: 058
     Dates: start: 20110603
  2. REBIF [Suspect]
     Route: 058

REACTIONS (4)
  - Lung infection [Recovered/Resolved]
  - Sinusitis [Recovering/Resolving]
  - Depression [Recovered/Resolved]
  - Pain [Recovering/Resolving]
